FAERS Safety Report 8452952-0 (Version None)
Quarter: 2012Q2

REPORT INFORMATION
  Report Type: 
  Country: None (occurrence: None)
  Receive Date: 20120620
  Receipt Date: 20120612
  Transmission Date: 20120825
  Serious: Yes (Hospitalization)
  Sender: FDA-Public Use
  Company Number: PHHY2012FR051840

PATIENT
  Sex: Female

DRUGS (13)
  1. VANCOMYCIN HCL [Suspect]
     Dosage: 2 DF, UNK
     Dates: start: 20120506, end: 20120508
  2. PIPERACILLIN/TAZOBACTAM [Interacting]
     Dosage: 4G/500MG
     Dates: start: 20120506, end: 20120509
  3. ACETAMINOPHEN [Concomitant]
  4. AMIKACIN [Interacting]
     Dosage: 1617 MG, UNK
     Dates: start: 20120507, end: 20120510
  5. NEBIVOLOL HCL [Concomitant]
     Dosage: 0.5 DF, UNK
  6. MINI-SINTROM [Interacting]
     Dosage: UNK
     Dates: start: 20120425
  7. IMIPENEM AND CILASTATIN SODIUM [Interacting]
     Dosage: 4 DF, DAILY (500 MG)
     Dates: start: 20120507, end: 20120521
  8. NICARDIPINE HCL [Concomitant]
     Dosage: 2 DF, UNK
  9. GENTAMICIN [Interacting]
     Dosage: 5 MG/KG, UNK
     Dates: start: 20120506, end: 20120509
  10. MINI-SINTROM [Interacting]
     Dosage: UNK
     Dates: end: 20120401
  11. MINI-SINTROM [Interacting]
     Dosage: 2 DF, UNK
  12. ZOLPIDEM TARTRATE [Concomitant]
     Dosage: 1 DF, UNK
  13. DIGOXIN [Concomitant]
     Dosage: 1 DF, UNK

REACTIONS (2)
  - DRUG INTERACTION [None]
  - INTERNATIONAL NORMALISED RATIO INCREASED [None]
